FAERS Safety Report 7668627-1 (Version None)
Quarter: 2011Q3

REPORT INFORMATION
  Report Type: 
  Country: None (occurrence: None)
  Receive Date: 20110808
  Receipt Date: 20110808
  Transmission Date: 20111222
  Serious: Yes (Death, Other)
  Sender: FDA-Public Use
  Company Number: None

PATIENT
  Sex: Female
  Weight: 54.431 kg

DRUGS (1)
  1. CLARITHROMYCIN [Suspect]
     Indication: LUNG DISORDER
     Dates: start: 20110610, end: 20110621

REACTIONS (8)
  - VOMITING [None]
  - URINE OUTPUT DECREASED [None]
  - SKIN LESION [None]
  - DYSPEPSIA [None]
  - RASH GENERALISED [None]
  - SKIN HAEMORRHAGE [None]
  - RESPIRATORY ARREST [None]
  - RESPIRATORY DISTRESS [None]
